FAERS Safety Report 17458360 (Version 3)
Quarter: 2020Q1

REPORT INFORMATION
  Report Type: Spontaneous
  Country: PL (occurrence: PL)
  Receive Date: 20200225
  Receipt Date: 20200324
  Transmission Date: 20200409
  Serious: Yes (Hospitalization, Other)
  Sender: FDA-Public Use
  Company Number: PL-PFIZER INC-2020076663

PATIENT
  Age: 84 Year
  Sex: Female
  Weight: 70 kg

DRUGS (5)
  1. MILURIT [Suspect]
     Active Substance: ALLOPURINOL
     Dosage: UNK, DAILY
     Route: 065
  2. PANTOPRAZOLE [Suspect]
     Active Substance: PANTOPRAZOLE
     Dosage: UNK, DAILY
     Route: 065
  3. THYROZOL [Suspect]
     Active Substance: METHIMAZOLE
     Dosage: UNK, DAILY
     Route: 065
  4. ACARD [Suspect]
     Active Substance: ASPIRIN
     Dosage: UNK, DAILY
     Route: 065
  5. TULIP [ATORVASTATIN CALCIUM] [Suspect]
     Active Substance: ATORVASTATIN CALCIUM
     Dosage: UNK, DAILY
     Route: 065

REACTIONS (6)
  - Spigelian hernia [Recovered/Resolved]
  - Neuropsychiatric symptoms [Unknown]
  - Faeces discoloured [Unknown]
  - Hyperglycaemia [Unknown]
  - Weight decreased [Unknown]
  - Anaemia [Unknown]
